FAERS Safety Report 6081202-8 (Version None)
Quarter: 2009Q1

REPORT INFORMATION
  Report Type: 
  Country: None (occurrence: None)
  Receive Date: 20090213
  Receipt Date: 20090209
  Transmission Date: 20090719
  Serious: Yes (Death)
  Sender: FDA-Public Use
  Company Number: 2009-191191-NL

PATIENT
  Age: 23 Year
  Sex: Female

DRUGS (1)
  1. NUVARING [Suspect]
     Dates: start: 20071001, end: 20080701

REACTIONS (7)
  - DEEP VEIN THROMBOSIS [None]
  - HEADACHE [None]
  - MUSCULOSKELETAL STIFFNESS [None]
  - NAUSEA [None]
  - PULMONARY EMBOLISM [None]
  - VISION BLURRED [None]
  - VOMITING [None]
